FAERS Safety Report 6747888-7 (Version None)
Quarter: 2010Q2

REPORT INFORMATION
  Report Type: 
  Country: None (occurrence: None)
  Receive Date: 20100528
  Receipt Date: 20100526
  Transmission Date: 20101027
  Serious: Yes (Other)
  Sender: FDA-Public Use
  Company Number: BR-ABBOTT-09P-020-0500900-00

PATIENT
  Sex: Female
  Weight: 52 kg

DRUGS (16)
  1. HUMIRA [Suspect]
     Indication: RHEUMATOID ARTHRITIS
     Route: 058
     Dates: start: 20070201
  2. HUMIRA [Suspect]
  3. OMEPRAZOLE [Concomitant]
     Indication: GASTRIC DISORDER
     Route: 048
  4. ACETAMINOPHEN AND TRAMADOL HCL [Concomitant]
     Indication: PAIN
     Route: 048
  5. CELECOXIB [Concomitant]
     Indication: ANTIINFLAMMATORY THERAPY
     Route: 048
  6. CALCIUM CARBONATE W/VITAMIN D [Concomitant]
     Indication: DRUG USE FOR UNKNOWN INDICATION
     Route: 048
  7. METHOTREXATE [Concomitant]
     Indication: DRUG USE FOR UNKNOWN INDICATION
     Route: 048
  8. FOLIC ACID [Concomitant]
     Indication: DRUG USE FOR UNKNOWN INDICATION
     Route: 048
  9. DIPYRONE [Concomitant]
     Indication: PAIN
     Route: 048
  10. METICORTEN [Concomitant]
     Indication: RHEUMATOID ARTHRITIS
     Route: 048
  11. LOSARTAN POTASSIUM [Concomitant]
     Indication: BLOOD PRESSURE
     Route: 048
     Dates: start: 20080101
  12. NIMESULIDE [Concomitant]
     Indication: RHEUMATOID ARTHRITIS
     Route: 048
     Dates: start: 20100101
  13. LEVEL [Concomitant]
     Indication: CONTRACEPTION
     Route: 048
     Dates: start: 20090101
  14. PARACETAMOL [Concomitant]
     Indication: DRUG USE FOR UNKNOWN INDICATION
     Route: 048
     Dates: start: 20070101
  15. PANTOPRAZOLE [Concomitant]
     Indication: GASTRIC DISORDER
     Route: 048
     Dates: start: 20070101
  16. DIPYRONE [Concomitant]
     Route: 048

REACTIONS (13)
  - ARRHYTHMIA [None]
  - ARTHRALGIA [None]
  - ARTHRITIS [None]
  - CARDIAC DISORDER [None]
  - COUGH [None]
  - DERMATITIS ALLERGIC [None]
  - HYPERTENSION [None]
  - INFLUENZA [None]
  - INJECTION SITE PAIN [None]
  - OSTEOARTHRITIS [None]
  - PAIN IN EXTREMITY [None]
  - SWELLING [None]
  - URINARY TRACT INFECTION [None]
